FAERS Safety Report 25150335 (Version 4)
Quarter: 2025Q2

REPORT INFORMATION
  Report Type: Spontaneous
  Country: JP (occurrence: JP)
  Receive Date: 20250402
  Receipt Date: 20250623
  Transmission Date: 20250717
  Serious: Yes (Other)
  Sender: PHARMAESSENTIA
  Company Number: JP-PHARMAESSENTIA CORPORATION-JP-2025-PEC-006398

PATIENT

DRUGS (10)
  1. BESREMI [Suspect]
     Active Substance: ROPEGINTERFERON ALFA-2B-NJFT
     Indication: Polycythaemia vera
     Dosage: 50 MCG, Q2W
     Route: 058
     Dates: start: 20240201
  2. BESREMI [Suspect]
     Active Substance: ROPEGINTERFERON ALFA-2B-NJFT
     Dosage: 200 MCG, Q2W
     Route: 058
     Dates: end: 20241128
  3. BESREMI [Suspect]
     Active Substance: ROPEGINTERFERON ALFA-2B-NJFT
  4. BESREMI [Suspect]
     Active Substance: ROPEGINTERFERON ALFA-2B-NJFT
  5. BESREMI [Suspect]
     Active Substance: ROPEGINTERFERON ALFA-2B-NJFT
  6. BESREMI [Suspect]
     Active Substance: ROPEGINTERFERON ALFA-2B-NJFT
  7. BESREMI [Suspect]
     Active Substance: ROPEGINTERFERON ALFA-2B-NJFT
  8. ASPIRIN [Concomitant]
     Active Substance: ASPIRIN
     Indication: Product used for unknown indication
     Route: 065
     Dates: start: 20241126
  9. ASPIRIN [Concomitant]
     Active Substance: ASPIRIN
     Indication: Product used for unknown indication
  10. AZOSEMIDE [Concomitant]
     Active Substance: AZOSEMIDE
     Indication: Product used for unknown indication
     Route: 065

REACTIONS (4)
  - Nephrotic syndrome [Recovered/Resolved]
  - Cerebral haemorrhage [Unknown]
  - Hypothyroidism [Unknown]
  - Monoclonal gammopathy [Recovered/Resolved]

NARRATIVE: CASE EVENT DATE: 20241217
